FAERS Safety Report 24369433 (Version 1)
Quarter: 2024Q3

REPORT INFORMATION
  Report Type: Report from Study
  Country: US (occurrence: US)
  Receive Date: 20240927
  Receipt Date: 20240927
  Transmission Date: 20241016
  Serious: No
  Sender: ROCHE
  Company Number: US-ROCHE-2786237

PATIENT
  Age: 56 Year
  Sex: Female

DRUGS (15)
  1. LUCENTIS [Suspect]
     Active Substance: RANIBIZUMAB
     Indication: Type 2 diabetes mellitus
     Dosage: RIGHT EYE, DATE OF SERVICE: 03/AUG/2021, 10/MAY/2022, 02/AUG/2022, 24/JAN/2023, 07/MAR/2023, 25/JUL/
     Route: 050
  2. LUCENTIS [Suspect]
     Active Substance: RANIBIZUMAB
     Indication: Diabetic retinopathy
  3. LUCENTIS [Suspect]
     Active Substance: RANIBIZUMAB
     Indication: Macular oedema
  4. LUCENTIS [Suspect]
     Active Substance: RANIBIZUMAB
     Indication: Retinopathy hypertensive
  5. LUCENTIS [Suspect]
     Active Substance: RANIBIZUMAB
     Indication: Vitreous haemorrhage
  6. LUCENTIS [Suspect]
     Active Substance: RANIBIZUMAB
     Indication: Cataract
  7. ASPIRIN [Concomitant]
     Active Substance: ASPIRIN
  8. INSULIN NOS [Concomitant]
     Active Substance: INSULIN NOS
  9. HYDROCHLOROTHIAZIDE [Concomitant]
     Active Substance: HYDROCHLOROTHIAZIDE
  10. LASIX [Concomitant]
     Active Substance: FUROSEMIDE
     Route: 048
  11. LISINOPRIL [Concomitant]
     Active Substance: LISINOPRIL
     Route: 048
  12. GABAPENTIN [Concomitant]
     Active Substance: GABAPENTIN
  13. AMLODIPINE BESYLATE [Concomitant]
     Active Substance: AMLODIPINE BESYLATE
  14. ATORVASTATIN CALCIUM [Concomitant]
     Active Substance: ATORVASTATIN CALCIUM
     Route: 048
  15. SYSTANE (HYPROMELLOSE 2910 (4000 MPA.S)) [Concomitant]
     Active Substance: HYPROMELLOSE 2910 (4000 MPA.S)
     Dosage: OU

REACTIONS (4)
  - Arthralgia [Unknown]
  - Headache [Unknown]
  - Swelling [Unknown]
  - Vision blurred [Unknown]
